FAERS Safety Report 17330435 (Version 5)
Quarter: 2020Q1

REPORT INFORMATION
  Report Type: Spontaneous
  Country: US (occurrence: US)
  Receive Date: 20200128
  Receipt Date: 20200311
  Transmission Date: 20200409
  Serious: Yes (Hospitalization)
  Sender: FDA-Public Use
  Company Number: US-UNITED THERAPEUTICS-UNT-2020-001033

PATIENT
  Age: 42 Year
  Sex: Female
  Weight: 43.84 kg

DRUGS (4)
  1. REMODULIN [Suspect]
     Active Substance: TREPROSTINIL
     Dosage: UNK, CONTINUING
     Route: 041
  2. REMODULIN [Suspect]
     Active Substance: TREPROSTINIL
     Dosage: UNK (INCREASED DOSE), CONTINUING
     Route: 041
  3. REMODULIN [Suspect]
     Active Substance: TREPROSTINIL
     Indication: PULMONARY ARTERIAL HYPERTENSION
     Dosage: 0.164 ?G/KG, CONTINUING
     Route: 041
     Dates: start: 20190909
  4. REMODULIN [Suspect]
     Active Substance: TREPROSTINIL
     Dosage: 0.171 ?G/KG, CONTINUING
     Route: 041

REACTIONS (4)
  - Diarrhoea [Recovering/Resolving]
  - Bacterial infection [Unknown]
  - Dyspnoea [Unknown]
  - Nausea [Recovering/Resolving]

NARRATIVE: CASE EVENT DATE: 20200120
